FAERS Safety Report 16836492 (Version 2)
Quarter: 2020Q4

REPORT INFORMATION
  Report Type: Spontaneous
  Country: AU (occurrence: AU)
  Receive Date: 20190921
  Receipt Date: 20201209
  Transmission Date: 20210113
  Serious: Yes (Other)
  Sender: FDA-Public Use
  Company Number: AU-009507513-1909AUS005814

PATIENT
  Sex: Female

DRUGS (1)
  1. IMPLANON NXT [Suspect]
     Active Substance: ETONOGESTREL
     Dosage: 3RD OR 4TH IMPLANT (1 DOSE UNSPECIFIED)
     Route: 059
     Dates: start: 2018

REACTIONS (6)
  - Pregnancy with implant contraceptive [Recovered/Resolved]
  - Menorrhagia [Unknown]
  - Abortion spontaneous [Unknown]
  - Menorrhagia [Recovered/Resolved]
  - Unintended pregnancy [Recovered/Resolved]
  - Dysmenorrhoea [Unknown]
